FAERS Safety Report 13663524 (Version 1)
Quarter: 2017Q2

REPORT INFORMATION
  Report Type: Report from Study
  Country: CN (occurrence: CN)
  Receive Date: 20170619
  Receipt Date: 20170619
  Transmission Date: 20170830
  Serious: Yes (Other)
  Sender: FDA-Public Use
  Company Number: CN-ROCHE-1950851

PATIENT
  Age: 54 Year
  Sex: Male

DRUGS (2)
  1. ALTEPLASE [Suspect]
     Active Substance: ALTEPLASE
     Dosage: UP TO A MAXIMUM OF 90 MG; THE REST INFUSED FOR 1 HOUR
     Route: 042
  2. ALTEPLASE [Suspect]
     Active Substance: ALTEPLASE
     Indication: ISCHAEMIC STROKE
     Dosage: UP TO A MAXIMUM OF 90 MG; 10% OF TOTAL DOSE AS BOLUS
     Route: 040

REACTIONS (1)
  - Cerebral infarction [Unknown]
